FAERS Safety Report 18812164 (Version 2)
Quarter: 2021Q2

REPORT INFORMATION
  Report Type: Spontaneous
  Country: US (occurrence: US)
  Receive Date: 20210129
  Receipt Date: 20210423
  Transmission Date: 20210717
  Serious: Yes (Death)
  Sender: FDA-Public Use
  Company Number: 2020SGN03443

PATIENT
  Sex: Female

DRUGS (3)
  1. HERCEPTIN [Concomitant]
     Active Substance: TRASTUZUMAB
     Dosage: UNK
     Dates: start: 202007, end: 202011
  2. CAPECITABINE. [Suspect]
     Active Substance: CAPECITABINE
     Indication: BREAST CANCER FEMALE
     Dosage: UNK
     Dates: start: 202007, end: 202011
  3. TUKYSA [Suspect]
     Active Substance: TUCATINIB
     Indication: BREAST CANCER FEMALE
     Dosage: 300 MG, BID
     Dates: start: 202007, end: 202011

REACTIONS (11)
  - Fatigue [Unknown]
  - Vomiting [Unknown]
  - Oral candidiasis [Unknown]
  - Dysphagia [Unknown]
  - Diarrhoea [Unknown]
  - Metastases to meninges [Fatal]
  - Unevaluable event [Unknown]
  - Stomatitis [Unknown]
  - Breast cancer metastatic [Fatal]
  - Gait inability [Unknown]
  - Brain neoplasm [Unknown]
